FAERS Safety Report 4803805-8 (Version None)
Quarter: 2005Q4

REPORT INFORMATION
  Report Type: 
  Country: None (occurrence: None)
  Receive Date: 20051019
  Receipt Date: 20051014
  Transmission Date: 20060501
  Serious: Yes (Hospitalization)
  Sender: FDA-Public Use
  Company Number: FR-MERCK-0510FRA00039

PATIENT
  Age: 64 Year
  Sex: Male

DRUGS (11)
  1. SINGULAIR [Suspect]
     Indication: BRONCHITIS
     Route: 048
     Dates: start: 20050217, end: 20050324
  2. FENOTEROL HYDROBROMIDE AND IPRATROPIUM BROMIDE [Concomitant]
     Indication: BRONCHITIS
     Route: 055
     Dates: start: 20041102
  3. RIBAVIRIN [Concomitant]
     Indication: HEPATITIS C
     Route: 048
     Dates: start: 20041125, end: 20050404
  4. RABEPRAZOLE SODIUM [Concomitant]
     Route: 048
     Dates: start: 20050103, end: 20050404
  5. PEGINTERFERON ALFA-2B [Concomitant]
     Indication: HEPATITIS C
     Route: 058
     Dates: start: 20041125, end: 20050404
  6. KLEBSIELLA PNEUMONIAE GLYCOPROTEIN [Concomitant]
     Route: 048
     Dates: start: 20050217, end: 20050225
  7. ZOPICLONE [Concomitant]
     Route: 048
  8. ACETAMINOPHEN [Concomitant]
     Route: 048
     Dates: start: 20041208, end: 20050404
  9. VITAMIN E [Concomitant]
     Route: 048
     Dates: start: 19850101, end: 20050404
  10. YOHIMBINE HYDROCHLORIDE [Concomitant]
     Route: 048
     Dates: start: 19850101, end: 20050404
  11. ASPIRIN [Concomitant]
     Route: 048

REACTIONS (5)
  - DERMATITIS EXFOLIATIVE [None]
  - EOSINOPHILIA [None]
  - OEDEMA [None]
  - PRURITUS [None]
  - PYREXIA [None]
